FAERS Safety Report 19430166 (Version 2)
Quarter: 2021Q3

REPORT INFORMATION
  Report Type: Spontaneous
  Country: DE (occurrence: DE)
  Receive Date: 20210617
  Receipt Date: 20210708
  Transmission Date: 20211014
  Serious: Yes (Other)
  Sender: FDA-Public Use
  Company Number: NVSC2021DE134517

PATIENT
  Age: 70 Year
  Sex: Male

DRUGS (12)
  1. METHOTREXATE. [Suspect]
     Active Substance: METHOTREXATE
     Indication: CENTRAL NERVOUS SYSTEM LYMPHOMA
     Dosage: 4000 MG/M2 CYCLE 1?3 (1 CYCLE OF 2 WEEKS), DAY 1
     Route: 042
  2. ARA?C [Suspect]
     Active Substance: CYTARABINE
     Dosage: 10 MG CYCLE 4 AND 6 (1 CYCLE OF 3 WEEKS), DAY 6
     Route: 016
  3. METHOTREXATE. [Suspect]
     Active Substance: METHOTREXATE
     Dosage: 2.5 MG CYCLE 5 (1 CYCLE OF 2 WEEKS), DAY 2?4
     Route: 042
  4. ARA?C [Suspect]
     Active Substance: CYTARABINE
     Dosage: 10 MG CYCLE 5 (1 CYCLE OF 2 WEEKS), DAY 5
     Route: 016
  5. METHOTREXATE. [Suspect]
     Active Substance: METHOTREXATE
     Dosage: 4000 MG/M2 CYCLE 5 (1 CYCLE OF 2 WEEKS), DAY 1
     Route: 042
  6. IFOSFAMIDE. [Concomitant]
     Active Substance: IFOSFAMIDE
     Indication: CENTRAL NERVOUS SYSTEM LYMPHOMA
     Dosage: 800 MG/M2 CYCLE 1?3 (1 CYCLE OF 2 WEEKS), DAY 2?5
     Route: 042
  7. RITUXIMAB. [Concomitant]
     Active Substance: RITUXIMAB
     Indication: CENTRAL NERVOUS SYSTEM LYMPHOMA
     Dosage: 500 MG/M2 CYCLE 1?3 (1 CYCLE OF 2 WEEKS), DAY 0?1
     Route: 042
  8. METHOTREXATE. [Suspect]
     Active Substance: METHOTREXATE
     Dosage: 2.5 MG CYCLE 4 AND 6 (1 CYCLE OF 3 WEEKS), DAY3?5
     Route: 042
  9. ARA?C [Suspect]
     Active Substance: CYTARABINE
     Indication: CENTRAL NERVOUS SYSTEM LYMPHOMA
     Dosage: 3000 MG/M2 CYCLE 4 AND 6 (1 CYCLE OF 3 WEEKS), DAY 1?2
     Route: 042
  10. IFOSFAMIDE. [Concomitant]
     Active Substance: IFOSFAMIDE
     Dosage: 800 MG/M2 CYCLE 5 (1 CYCLE OF 2 WEEKS), DAY2?5
     Route: 042
  11. PREDNISOLONE. [Concomitant]
     Active Substance: PREDNISOLONE
     Indication: CENTRAL NERVOUS SYSTEM LYMPHOMA
     Dosage: 3 MG CYCLE 4 AND 6 (1 CYCLE OF 3 WEEKS), DAY3?5
  12. PREDNISOLONE. [Concomitant]
     Active Substance: PREDNISOLONE
     Dosage: 3 MG CYCLE 5 (1 CYCLE OF 2 WEEKS), DAY 2?4

REACTIONS (2)
  - Staphylococcal infection [Unknown]
  - Product use in unapproved indication [Unknown]
